FAERS Safety Report 15066787 (Version 1)
Quarter: 2018Q2

REPORT INFORMATION
  Report Type: Spontaneous
  Country: US (occurrence: US)
  Receive Date: 20180626
  Receipt Date: 20180626
  Transmission Date: 20180711
  Serious: Yes (Life-Threatening, Hospitalization, Other)
  Sender: FDA-Public Use
  Company Number: PHEH2018US024097

PATIENT
  Age: 58 Year
  Sex: Female

DRUGS (1)
  1. COSENTYX [Suspect]
     Active Substance: SECUKINUMAB
     Indication: PSORIATIC ARTHROPATHY
     Dosage: UNK
     Route: 058
     Dates: start: 20180402, end: 20180610

REACTIONS (4)
  - Cough [Unknown]
  - Pneumonia [Unknown]
  - Sputum discoloured [Unknown]
  - Sepsis [Unknown]

NARRATIVE: CASE EVENT DATE: 20180610
